FAERS Safety Report 14492036 (Version 1)
Quarter: 2018Q1

REPORT INFORMATION
  Report Type: Spontaneous
  Country: US (occurrence: US)
  Receive Date: 20180206
  Receipt Date: 20180206
  Transmission Date: 20180509
  Serious: No
  Sender: FDA-Public Use
  Company Number: US-PFIZER INC-2018048310

PATIENT
  Age: 49 Year
  Sex: Female
  Weight: 87 kg

DRUGS (1)
  1. IBRANCE [Suspect]
     Active Substance: PALBOCICLIB
     Indication: BREAST CANCER METASTATIC
     Dosage: UNK, CYCLIC, (D1-21 Q28 DAYS)
     Route: 048
     Dates: end: 201710

REACTIONS (1)
  - Neoplasm progression [Unknown]
